FAERS Safety Report 7968579-0 (Version None)
Quarter: 2011Q4

REPORT INFORMATION
  Report Type: 
  Country: None (occurrence: None)
  Receive Date: 20111207
  Receipt Date: 20111129
  Transmission Date: 20120403
  Serious: Yes (Other)
  Sender: FDA-Public Use
  Company Number: AUR-APL-2011-05996

PATIENT
  Sex: Male

DRUGS (5)
  1. VALPROIC ACID [Suspect]
     Indication: EPILEPSY
  2. CARBAMAZEPINE [Suspect]
     Indication: EPILEPSY
  3. LEVETIRACETAM [Suspect]
     Indication: EPILEPSY
  4. LAMOTRIGINE [Suspect]
     Indication: EPILEPSY
  5. LAMOTRIGINE [Suspect]
     Indication: STARING

REACTIONS (9)
  - ABNORMAL BEHAVIOUR [None]
  - MOTOR DYSFUNCTION [None]
  - LISTLESS [None]
  - COGNITIVE DISORDER [None]
  - FATIGUE [None]
  - ATAXIA [None]
  - RESTLESSNESS [None]
  - ANGER [None]
  - EDUCATIONAL PROBLEM [None]
